FAERS Safety Report 16589876 (Version 1)
Quarter: 2019Q3

REPORT INFORMATION
  Report Type: Spontaneous
  Country: US (occurrence: US)
  Receive Date: 20190718
  Receipt Date: 20190718
  Transmission Date: 20191004
  Serious: Yes (Hospitalization, Other)
  Sender: FDA-Public Use
  Company Number: US-MACLEODS PHARMACEUTICALS US LTD-MAC2019022115

PATIENT

DRUGS (7)
  1. TRIAMCINOLONE ACETONIDE 0.5 % OINTMENT [Suspect]
     Active Substance: TRIAMCINOLONE ACETONIDE
     Indication: DERMATITIS EXFOLIATIVE GENERALISED
  2. PREDNISONE. [Suspect]
     Active Substance: PREDNISONE
     Indication: CONDITION AGGRAVATED
  3. TRIAMCINOLONE ACETONIDE 0.5 % OINTMENT [Suspect]
     Active Substance: TRIAMCINOLONE ACETONIDE
     Indication: CONDITION AGGRAVATED
     Dosage: USING OINTMENT SINCE PAST FEW YEARS.
     Route: 061
  4. PREDNISONE. [Suspect]
     Active Substance: PREDNISONE
     Indication: DERMATITIS EXFOLIATIVE GENERALISED
  5. TRIAMCINOLONE ACETONIDE 0.5 % OINTMENT [Suspect]
     Active Substance: TRIAMCINOLONE ACETONIDE
     Indication: DERMATITIS ATOPIC
  6. NORMAL SALINE [Suspect]
     Active Substance: SODIUM CHLORIDE
     Indication: DEHYDRATION
     Dosage: 2 LITER, INFUSION, TOTAL
     Route: 042
  7. PREDNISONE. [Suspect]
     Active Substance: PREDNISONE
     Indication: DERMATITIS ATOPIC
     Dosage: 50 MILLIGRAM
     Route: 048

REACTIONS (2)
  - Fluid overload [Recovering/Resolving]
  - Pulmonary oedema [Recovering/Resolving]
